FAERS Safety Report 4448325-8 (Version None)
Quarter: 2004Q3

REPORT INFORMATION
  Report Type: 
  Country: None (occurrence: None)
  Receive Date: 20040913
  Receipt Date: 20040825
  Transmission Date: 20050211
  Serious: Yes (Life-Threatening)
  Sender: FDA-Public Use
  Company Number: US013649

PATIENT
  Sex: Male

DRUGS (3)
  1. ACTIQ [Suspect]
     Indication: PAIN
     Dosage: 3200 UG ONCE BUCCAL
     Route: 002
     Dates: start: 20030101
  2. MORPHINE [Suspect]
     Indication: PAIN
     Dates: start: 20030101
  3. PHENERGAN [Concomitant]

REACTIONS (1)
  - HYPERVENTILATION [None]
